FAERS Safety Report 6470521-9 (Version None)
Quarter: 2009Q4

REPORT INFORMATION
  Report Type: 
  Country: None (occurrence: None)
  Receive Date: 20091202
  Receipt Date: 20091202
  Transmission Date: 20100525
  Serious: Yes (Hospitalization)
  Sender: FDA-Public Use
  Company Number: None

PATIENT
  Age: 92 Year
  Sex: Male

DRUGS (14)
  1. GABAPENTIN [Suspect]
     Indication: POST HERPETIC NEURALGIA
     Dosage: 300 MG TID PO  ^RECENT^ START
     Route: 048
  2. FUROSEMIDE [Concomitant]
  3. ENALAPRIL [Concomitant]
  4. POTASSIUM CHLORIDE [Concomitant]
  5. VITAMIN E [Concomitant]
  6. ASPIRIN [Concomitant]
  7. ATENOLOL [Concomitant]
  8. CALCIUM CARBONATE [Concomitant]
  9. DOXAZOSIN [Concomitant]
  10. FOLIC ACID [Concomitant]
  11. ISOSORBIDE MONONITRATE [Concomitant]
  12. MULTIPLE VITAMIN [Concomitant]
  13. MYCOPHENOLATE MOFETIL [Concomitant]
  14. OMEPRAZOLE [Concomitant]

REACTIONS (6)
  - AGRANULOCYTOSIS [None]
  - CONFUSIONAL STATE [None]
  - DYSPNOEA [None]
  - FALL [None]
  - FEBRILE NEUTROPENIA [None]
  - HEAD INJURY [None]
